FAERS Safety Report 18738108 (Version 1)
Quarter: 2021Q1

REPORT INFORMATION
  Report Type: Spontaneous
  Country: US (occurrence: US)
  Receive Date: 20210114
  Receipt Date: 20210114
  Transmission Date: 20210419
  Serious: No
  Sender: FDA-Public Use
  Company Number: US-009507513-2101USA003781

PATIENT
  Age: 42 Year
  Sex: Female

DRUGS (12)
  1. IBUPROFEN. [Concomitant]
     Active Substance: IBUPROFEN
  2. METFORMIN [Concomitant]
     Active Substance: METFORMIN HYDROCHLORIDE
  3. FOLLISTIM AQ [Suspect]
     Active Substance: FOLLITROPIN
     Indication: INFERTILITY FEMALE
     Dosage: STRENGTH: 900 IU/ 1.08 ML; 300 DOSAGE FORM (UNITS), QD
     Route: 058
     Dates: start: 20200222
  4. GANIRELIX ACETATE INJECTION [Concomitant]
     Active Substance: GANIRELIX ACETATE
  5. CEPHALEXIN. [Concomitant]
     Active Substance: CEPHALEXIN
  6. ONDANSETRON [Concomitant]
     Active Substance: ONDANSETRON
  7. MENOPUR [Concomitant]
     Active Substance: FOLLITROPIN\LUTEINIZING HORMONE
  8. LEUPROLIDE [Suspect]
     Active Substance: LEUPROLIDE
     Dosage: UNK
  9. NOVAREL [Concomitant]
     Active Substance: CHORIOGONADOTROPIN ALFA
  10. PROGESTERONE. [Concomitant]
     Active Substance: PROGESTERONE
  11. ZYRTEC [Concomitant]
     Active Substance: CETIRIZINE HYDROCHLORIDE
  12. PNV [Concomitant]

REACTIONS (2)
  - Vomiting [Unknown]
  - Dizziness [Unknown]

NARRATIVE: CASE EVENT DATE: 20210106
